FAERS Safety Report 17124358 (Version 4)
Quarter: 2020Q4

REPORT INFORMATION
  Report Type: Report from Study
  Country: CA (occurrence: CA)
  Receive Date: 20191206
  Receipt Date: 20201012
  Transmission Date: 20210113
  Serious: Yes (Hospitalization, Other)
  Sender: FDA-Public Use
  Company Number: CA-GLAXOSMITHKLINE-CA2019AMR212742

PATIENT
  Sex: Male

DRUGS (5)
  1. NUCALA [Suspect]
     Active Substance: MEPOLIZUMAB
     Indication: ASTHMA
     Dosage: 100 MG, Z
     Dates: start: 20191211
  2. SYMBICORT [Suspect]
     Active Substance: BUDESONIDE\FORMOTEROL FUMARATE DIHYDRATE
     Indication: ASTHMA
     Dosage: 2 PUFF(S), BID 200 UG
  3. SPIRIVA [Suspect]
     Active Substance: TIOTROPIUM BROMIDE MONOHYDRATE
     Indication: ASTHMA
     Dosage: 2 PUFF(S), QD
  4. SALBUTAMOL SULPHATE [Suspect]
     Active Substance: ALBUTEROL SULFATE
     Indication: PRODUCT USED FOR UNKNOWN INDICATION
     Dosage: UNK
     Dates: start: 20091122
  5. PULMICORT TURBUHALER [Suspect]
     Active Substance: BUDESONIDE
     Indication: ASTHMA
     Dosage: 1 PUFF(S), BID

REACTIONS (6)
  - Dyspnoea [Unknown]
  - Therapeutic product effect incomplete [Unknown]
  - Wheezing [Unknown]
  - Asthma [Unknown]
  - Loss of personal independence in daily activities [Unknown]
  - Sleep disorder due to a general medical condition [Unknown]
